FAERS Safety Report 14009357 (Version 1)
Quarter: 2017Q3

REPORT INFORMATION
  Report Type: Report from Study
  Country: NL (occurrence: NL)
  Receive Date: 20170925
  Receipt Date: 20170925
  Transmission Date: 20171128
  Serious: Yes (Hospitalization)
  Sender: FDA-Public Use
  Company Number: NL-MYLANLABS-2017M1059566

PATIENT
  Age: 15 Year
  Sex: Female

DRUGS (1)
  1. METHYLPHENIDATE. [Suspect]
     Active Substance: METHYLPHENIDATE
     Indication: PRODUCT USED FOR UNKNOWN INDICATION
     Dosage: 7.1 MG/KG
     Route: 048

REACTIONS (15)
  - Muscle contracture [Unknown]
  - Body temperature increased [Unknown]
  - Tremor [Unknown]
  - Tachycardia [Unknown]
  - Agitation [Unknown]
  - Hypertension [Unknown]
  - Hallucination [Unknown]
  - Psychotic disorder [Unknown]
  - Tachypnoea [Unknown]
  - Aggression [Unknown]
  - Mydriasis [Unknown]
  - Confusional state [Unknown]
  - Hyperreflexia [Unknown]
  - Toxicity to various agents [Unknown]
  - Headache [Unknown]
